FAERS Safety Report 12603211 (Version 7)
Quarter: 2017Q3

REPORT INFORMATION
  Report Type: Report from Study
  Country: US (occurrence: US)
  Receive Date: 20160728
  Receipt Date: 20170728
  Transmission Date: 20171127
  Serious: Yes (Hospitalization)
  Sender: FDA-Public Use
  Company Number: US-SA-2016SA106248

PATIENT
  Age: 32 Year
  Sex: Female

DRUGS (1)
  1. LEMTRADA [Suspect]
     Active Substance: ALEMTUZUMAB
     Indication: MULTIPLE SCLEROSIS
     Route: 041
     Dates: start: 20160516, end: 20160520

REACTIONS (30)
  - Herpes virus infection [Recovered/Resolved]
  - Pyrexia [Not Recovered/Not Resolved]
  - Laboratory test abnormal [Recovered/Resolved]
  - Blood creatinine increased [Not Recovered/Not Resolved]
  - Dizziness [Unknown]
  - Pain [Not Recovered/Not Resolved]
  - Musculoskeletal pain [Unknown]
  - Acne [Not Recovered/Not Resolved]
  - Infectious mononucleosis [Recovered/Resolved]
  - Frustration tolerance decreased [Unknown]
  - Full blood count abnormal [Not Recovered/Not Resolved]
  - Alopecia [Unknown]
  - Candida infection [Recovered/Resolved]
  - Pyrexia [Recovered/Resolved]
  - Oropharyngeal pain [Unknown]
  - Swelling face [Not Recovered/Not Resolved]
  - Myalgia [Not Recovered/Not Resolved]
  - Cellulitis [Not Recovered/Not Resolved]
  - Neck pain [Unknown]
  - Asthenia [Recovered/Resolved]
  - Ill-defined disorder [Unknown]
  - Fatigue [Not Recovered/Not Resolved]
  - Limb discomfort [Not Recovered/Not Resolved]
  - Visual impairment [Unknown]
  - Headache [Recovering/Resolving]
  - Bronchitis [Unknown]
  - Fall [Not Recovered/Not Resolved]
  - Feeling abnormal [Not Recovered/Not Resolved]
  - Urinary tract infection [Unknown]
  - Ligament sprain [Not Recovered/Not Resolved]

NARRATIVE: CASE EVENT DATE: 2016
